FAERS Safety Report 4560200-7 (Version None)
Quarter: 2005Q1

REPORT INFORMATION
  Report Type: 
  Country: None (occurrence: None)
  Receive Date: 20050125
  Receipt Date: 20041124
  Transmission Date: 20050727
  Serious: Yes (Hospitalization, Other)
  Sender: FDA-Public Use
  Company Number: PHNU2004DE03954

PATIENT
  Age: 11 Month
  Sex: Male
  Weight: 10 kg

DRUGS (1)
  1. CLOZARIL [Suspect]
     Indication: MEDICATION ERROR
     Dosage: 25 TO 50 MG
     Route: 048
     Dates: start: 20041122, end: 20041122

REACTIONS (14)
  - ACCIDENTAL EXPOSURE [None]
  - AGITATION [None]
  - DEPRESSED LEVEL OF CONSCIOUSNESS [None]
  - EYELID PTOSIS [None]
  - FATIGUE [None]
  - GRANULOCYTOPENIA [None]
  - HYPOTONIA [None]
  - INCREASED APPETITE [None]
  - INFECTION [None]
  - MIOSIS [None]
  - MOVEMENT DISORDER [None]
  - PYREXIA [None]
  - SOMNOLENCE [None]
  - TACHYCARDIA [None]
